FAERS Safety Report 4395210-6 (Version None)
Quarter: 2004Q2

REPORT INFORMATION
  Report Type: 
  Country: None (occurrence: None)
  Receive Date: 20040621
  Receipt Date: 20021002
  Transmission Date: 20050107
  Serious: Yes (Other)
  Sender: FDA-Public Use
  Company Number: KII-2002-0007685

PATIENT
  Age: 42 Year
  Sex: Female

DRUGS (6)
  1. OXYCONTIN [Suspect]
     Indication: PAIN
     Dosage: 60 MG, BID
  2. VICODIN [Suspect]
     Indication: PAIN
  3. FLEXERIL [Concomitant]
  4. LITHIUM [Concomitant]
  5. VIOXX [Concomitant]
  6. SSRI [Concomitant]

REACTIONS (5)
  - AFFECT LABILITY [None]
  - AGITATION [None]
  - DRUG DEPENDENCE [None]
  - IRRITABILITY [None]
  - SEDATION [None]
